FAERS Safety Report 26086681 (Version 1)
Quarter: 2025Q4

REPORT INFORMATION
  Report Type: Spontaneous
  Country: US (occurrence: None)
  Receive Date: 20251124
  Receipt Date: 20251124
  Transmission Date: 20260117
  Serious: Yes (Other)
  Sender: FDA-CTU
  Company Number: None

PATIENT
  Age: 74 Year
  Sex: Male

DRUGS (11)
  1. AMOXICILLIN AND CLAVULANATE POTASSIUM [Suspect]
     Active Substance: AMOXICILLIN\CLAVULANATE POTASSIUM
     Indication: Sinusitis
     Dosage: FREQUENCY : TWICE A DAY;?
     Route: 048
     Dates: start: 20251120, end: 20251122
  2. ISOSORBIDE MONONITRATE 60MG [Concomitant]
  3. TAMSULOSIN [Concomitant]
     Active Substance: TAMSULOSIN
  4. HUMALOG [Concomitant]
     Active Substance: INSULIN LISPRO
  5. LANTUS [Concomitant]
     Active Substance: INSULIN GLARGINE
  6. FUROSEMIDE [Concomitant]
     Active Substance: FUROSEMIDE
  7. LISINOPRIL [Concomitant]
     Active Substance: LISINOPRIL
  8. GLIPIZIDE [Concomitant]
     Active Substance: GLIPIZIDE
  9. PANTOPRAZOLE [Concomitant]
     Active Substance: PANTOPRAZOLE
  10. REPATHA [Concomitant]
     Active Substance: EVOLOCUMAB
  11. FINASTERIDE [Concomitant]
     Active Substance: FINASTERIDE

REACTIONS (3)
  - Myalgia [None]
  - Pain in extremity [None]
  - Gait inability [None]

NARRATIVE: CASE EVENT DATE: 20251122
